FAERS Safety Report 9460205 (Version 1)
Quarter: 2013Q3

REPORT INFORMATION
  Report Type: Spontaneous
  Country: US (occurrence: US)
  Receive Date: 20130815
  Receipt Date: 20130815
  Transmission Date: 20140515
  Serious: No
  Sender: FDA-Public Use
  Company Number: US-PFIZER INC-2013235589

PATIENT
  Age: 56 Year
  Sex: Female

DRUGS (2)
  1. NEURONTIN [Suspect]
     Indication: DIABETIC NEUROPATHY
     Dosage: UNK
     Route: 048
  2. NEURONTIN [Suspect]
     Indication: PAIN
     Dosage: 900 MG, 2X/DAY

REACTIONS (1)
  - Drug ineffective [Unknown]
